FAERS Safety Report 7374575-7 (Version None)
Quarter: 2011Q1

REPORT INFORMATION
  Report Type: 
  Country: None (occurrence: None)
  Receive Date: 20110325
  Receipt Date: 20100329
  Transmission Date: 20110831
  Serious: No
  Sender: FDA-Public Use
  Company Number: US-MYLANLABS-2010S1005456

PATIENT
  Age: 55 Year
  Sex: Female

DRUGS (2)
  1. FENTANYL-100 [Suspect]
     Indication: OSTEOPOROSIS
     Dosage: X1
     Route: 062
     Dates: start: 20100327, end: 20100328
  2. FENTANYL-100 [Suspect]
     Indication: OSTEOARTHRITIS
     Dosage: X1
     Route: 062
     Dates: start: 20100327, end: 20100328

REACTIONS (4)
  - NAUSEA [None]
  - FEELING ABNORMAL [None]
  - DIZZINESS [None]
  - HEADACHE [None]
